FAERS Safety Report 9276156 (Version 4)
Quarter: 2013Q2

REPORT INFORMATION
  Report Type: Report from Study
  Country: CA (occurrence: CA)
  Receive Date: 20130507
  Receipt Date: 20130607
  Transmission Date: 20140414
  Serious: Yes (Hospitalization, Other)
  Sender: FDA-Public Use
  Company Number: CA-ABBOTT-13P-028-1085733-00

PATIENT
  Sex: Female
  Weight: 57 kg

DRUGS (11)
  1. HUMIRA [Suspect]
     Indication: CROHN^S DISEASE
     Route: 058
     Dates: start: 20130418
  2. HUMIRA [Suspect]
  3. PANTOPRAZOLE [Concomitant]
     Indication: HIATUS HERNIA
     Route: 048
  4. CARBOCAL [Concomitant]
     Indication: PRODUCT USED FOR UNKNOWN INDICATION
     Dosage: 500 MG / 400 U
     Route: 048
  5. PREDNISONE [Concomitant]
     Route: 048
     Dates: start: 201303
  6. PREDNISONE [Concomitant]
     Dosage: DECREASING DOSE
  7. PANTALOC [Concomitant]
     Indication: PRODUCT USED FOR UNKNOWN INDICATION
     Route: 048
  8. ATORVASTATIN [Concomitant]
     Indication: PRODUCT USED FOR UNKNOWN INDICATION
  9. GRAVOL [Concomitant]
     Indication: PRODUCT USED FOR UNKNOWN INDICATION
  10. RENAX [Concomitant]
     Indication: PRODUCT USED FOR UNKNOWN INDICATION
  11. BETAHISTINE [Concomitant]
     Indication: PRODUCT USED FOR UNKNOWN INDICATION

REACTIONS (10)
  - Hypokalaemia [Not Recovered/Not Resolved]
  - Atrial fibrillation [Not Recovered/Not Resolved]
  - Asthenia [Unknown]
  - Decreased appetite [Unknown]
  - Electrolyte imbalance [Unknown]
  - Hyponatraemia [Unknown]
  - Anaemia [Unknown]
  - Vaginal haemorrhage [Unknown]
  - Female genital tract fistula [Unknown]
  - Diarrhoea [Unknown]
